FAERS Safety Report 17982557 (Version 2)
Quarter: 2022Q3

REPORT INFORMATION
  Report Type: Spontaneous
  Country: LT (occurrence: None)
  Receive Date: 20200706
  Receipt Date: 20220909
  Transmission Date: 20221026
  Serious: Yes (Hospitalization, Other)
  Sender: FDA-Public Use
  Company Number: LT-ORION CORPORATION ORION PHARMA-TREX2020-2240

PATIENT
  Age: 55 Year
  Sex: Female

DRUGS (9)
  1. METHOTREXATE [Suspect]
     Active Substance: METHOTREXATE
     Indication: Rheumatoid arthritis
     Dosage: DOSE WAS INCREASED TO 15 MG PER WEEK
     Route: 065
  2. METHYLPREDNISOLONE [Suspect]
     Active Substance: METHYLPREDNISOLONE
     Indication: Rheumatoid arthritis
     Route: 065
  3. METHYLPREDNISOLONE [Suspect]
     Active Substance: METHYLPREDNISOLONE
     Dosage: DECREASED DOSE
     Route: 065
  4. FOLIC ACID [Suspect]
     Active Substance: FOLIC ACID
     Indication: Rheumatoid arthritis
     Route: 065
  5. LORNOXICAM [Suspect]
     Active Substance: LORNOXICAM
     Indication: Rheumatoid arthritis
     Route: 065
  6. PLAQUENIL [Suspect]
     Active Substance: HYDROXYCHLOROQUINE SULFATE
     Indication: Rheumatoid arthritis
     Route: 065
  7. TRANDOLAPRIL\VERAPAMIL [Suspect]
     Active Substance: TRANDOLAPRIL\VERAPAMIL
     Indication: Hypertension
     Dosage: DOSE: 240MG/4MG
     Route: 065
  8. INFLIXIMAB [Suspect]
     Active Substance: INFLIXIMAB
     Indication: Rheumatoid arthritis
     Dosage: TWO COURSES
     Route: 065
     Dates: start: 20200619, end: 20200624
  9. CEFTAZIDIME [Concomitant]
     Active Substance: CEFTAZIDIME
     Indication: Antibiotic therapy
     Route: 017

REACTIONS (11)
  - Drug ineffective [Unknown]
  - Drug intolerance [Unknown]
  - Tick-borne viral encephalitis [Recovering/Resolving]
  - Osteoporosis [Unknown]
  - Pancytopenia [Recovering/Resolving]
  - Drug-induced liver injury [Unknown]
  - Rebound effect [Unknown]
  - Rheumatoid arthritis [Unknown]
  - Dizziness [Recovering/Resolving]
  - Vomiting [Recovering/Resolving]
  - Nausea [Recovering/Resolving]

NARRATIVE: CASE EVENT DATE: 20190624
